FAERS Safety Report 6461815 (Version 4)
Quarter: 2018Q3

REPORT INFORMATION
  Report Type: Spontaneous
  Country: GB (occurrence: GB)
  Receive Date: 20071108
  Receipt Date: 20180622
  Transmission Date: 20181010
  Serious: Yes (Other)
  Sender: FDA-Public Use
  Company Number: GB-RANBAXY-2007RR-10189

PATIENT

DRUGS (8)
  1. TOBRAMYCINE RPG 25MG/2.5ML SOLUTION INJECTABLE [Suspect]
     Active Substance: TOBRAMYCIN
     Indication: LUNG DISORDER
  2. COLOMYCIN (COLISTIN) [Suspect]
     Active Substance: COLISTIN SULFATE
     Indication: LUNG DISORDER
  3. ANADIN (IBUPROFEN) [Suspect]
     Active Substance: IBUPROFEN
     Indication: PSEUDOMONAS INFECTION
     Dosage: UNK
     Route: 065
     Dates: start: 2003, end: 2003
  4. ANADIN (IBUPROFEN) [Suspect]
     Active Substance: IBUPROFEN
     Indication: ARTHROPATHY
  5. COLOMYCIN (COLISTIN) [Suspect]
     Active Substance: COLISTIN SULFATE
     Indication: CONDITION AGGRAVATED
  6. TOBRAMYCINE RPG 25MG/2.5ML SOLUTION INJECTABLE [Suspect]
     Active Substance: TOBRAMYCIN
     Indication: PSEUDOMONAS INFECTION
     Dosage: 8 MG/KG, QD
     Route: 042
     Dates: start: 200311
  7. COLOMYCIN (COLISTIN) [Suspect]
     Active Substance: COLISTIN SULFATE
     Indication: PSEUDOMONAS INFECTION
     Dosage: 2 MIU, TID
     Route: 042
     Dates: start: 200311
  8. AZITHROMYCINE RANBAXY 250 MG COMPRIME PELLICULE [Suspect]
     Active Substance: AZITHROMYCIN
     Indication: ANTIINFLAMMATORY THERAPY
     Dosage: UNK
     Dates: end: 2003

REACTIONS (10)
  - Influenza like illness [Recovered/Resolved]
  - Blood urea increased [Recovered/Resolved]
  - Acute kidney injury [Recovered/Resolved]
  - Polyarthritis [Recovered/Resolved]
  - Vomiting [Recovered/Resolved]
  - Weight decreased [Recovered/Resolved]
  - Dyspepsia [Recovered/Resolved]
  - Hypophagia [Recovered/Resolved]
  - Drug interaction [Recovered/Resolved]
  - Blood creatinine increased [Recovered/Resolved]

NARRATIVE: CASE EVENT DATE: 2003
